FAERS Safety Report 15286103 (Version 1)
Quarter: 2018Q3

REPORT INFORMATION
  Report Type: Spontaneous
  Country: US (occurrence: US)
  Receive Date: 20180816
  Receipt Date: 20180816
  Transmission Date: 20181010
  Serious: Yes (Other)
  Sender: FDA-Public Use
  Company Number: US-PFIZER INC-2018320946

PATIENT
  Age: 83 Year
  Sex: Male
  Weight: 81 kg

DRUGS (23)
  1. MILRINONE [Suspect]
     Active Substance: MILRINONE
     Indication: CARDIAC AMYLOIDOSIS
     Dosage: UNK (0.20 MCG/KG/MIN FOR 3DAYS)
  2. ATORVASTATIN [Concomitant]
     Active Substance: ATORVASTATIN
     Dosage: 20 MG, 1X/DAY (QD)
  3. FUROSEMIDE. [Concomitant]
     Active Substance: FUROSEMIDE
     Dosage: 40 MG, UNK (AS DIRECTED)
     Route: 048
  4. TORSEMIDE. [Concomitant]
     Active Substance: TORSEMIDE
     Dosage: 40 MG, 2X/DAY
     Route: 048
  5. WARFARIN [Concomitant]
     Active Substance: WARFARIN
     Dosage: 2 MG, UNK
  6. COENZYME Q10 [Concomitant]
     Active Substance: UBIDECARENONE
     Dosage: 200 MG, DAILY
  7. COENZYME Q10 [Concomitant]
     Active Substance: UBIDECARENONE
     Dosage: 100 MG, 1X/DAY
     Route: 048
  8. CELEBREX [Concomitant]
     Active Substance: CELECOXIB
     Dosage: 100 MG, 2X/DAY
     Route: 048
  9. DIFLUNISAL. [Concomitant]
     Active Substance: DIFLUNISAL
     Dosage: 500 MG, DAILY
     Route: 048
  10. DIPHENHYDRAMINE. [Concomitant]
     Active Substance: DIPHENHYDRAMINE
     Indication: SLEEP DISORDER
     Dosage: 1 DF, 1X/DAY
  11. ELIQUIS [Concomitant]
     Active Substance: APIXABAN
     Indication: ANTICOAGULANT THERAPY
     Dosage: 5 MG, 2X/DAY (ONE PO BID)
     Route: 048
  12. ZYRTEC [Concomitant]
     Active Substance: CETIRIZINE HYDROCHLORIDE
     Dosage: 10 MG, DAILY
     Route: 048
  13. ZYRTEC [Concomitant]
     Active Substance: CETIRIZINE HYDROCHLORIDE
     Dosage: 10 MG, DAILY
     Route: 048
  14. MILRINONE [Suspect]
     Active Substance: MILRINONE
     Indication: CARDIAC FAILURE
     Dosage: UNK (3 MCG PER HOUR/72 MG IN D5W 180 ML BAG)
  15. XARELTO [Concomitant]
     Active Substance: RIVAROXABAN
     Dosage: 15 MG, 1X/DAY
     Route: 048
  16. VENTOLIN HFA [Concomitant]
     Active Substance: ALBUTEROL SULFATE
     Indication: DYSPNOEA
     Dosage: UNK UNK, AS NEEDED (90 MCG/ACTUATION AEROSOL INHALER/ 1?2 PUFFS BY MOUTH 4 TIMES A DAY )
  17. POTASSIUM [Concomitant]
     Active Substance: POTASSIUM
     Dosage: 40 MEQ, DAILY
  18. CARAFATE [Concomitant]
     Active Substance: SUCRALFATE
     Dosage: 10 ML, AS NEEDED
     Route: 048
  19. ATORVASTATIN [Concomitant]
     Active Substance: ATORVASTATIN
     Dosage: 40 MG, 1X/DAY
     Route: 048
  20. LISINOPRIL. [Concomitant]
     Active Substance: LISINOPRIL
     Dosage: 2.5 MG, 1X/DAY
     Route: 048
  21. WARFARIN [Concomitant]
     Active Substance: WARFARIN
     Dosage: 1 MG, 1X/DAY (EVERY EVENING)
     Route: 048
  22. DEXILANT [Concomitant]
     Active Substance: DEXLANSOPRAZOLE
     Dosage: 60 MG, 1X/DAY (QD)
  23. KLOR?CON M20 [Concomitant]
     Active Substance: POTASSIUM CHLORIDE
     Dosage: 40 MEQ, 1X/DAY (QD)

REACTIONS (6)
  - Drug ineffective [Unknown]
  - Blood creatinine increased [Unknown]
  - Glomerular filtration rate abnormal [Unknown]
  - Decreased appetite [Unknown]
  - Pericardial effusion [Unknown]
  - Dyspnoea exertional [Unknown]
